FAERS Safety Report 21248377 (Version 5)
Quarter: 2022Q4

REPORT INFORMATION
  Report Type: Spontaneous
  Country: US (occurrence: US)
  Receive Date: 20220824
  Receipt Date: 20221012
  Transmission Date: 20230112
  Serious: Yes (Hospitalization, Other)
  Sender: FDA-Public Use
  Company Number: US-SA-SAC20220816001671

PATIENT
  Age: 69 Year
  Sex: Male

DRUGS (22)
  1. TAXOTERE [Suspect]
     Active Substance: DOCETAXEL
     Indication: Non-small cell lung cancer metastatic
     Dosage: 137 MG (ADMINISTERED IV ON DAY 5 EVERY 21 DAYS)
     Route: 042
     Dates: start: 20220204, end: 20220304
  2. TAXOTERE [Suspect]
     Active Substance: DOCETAXEL
     Dosage: UNK
     Dates: start: 20220401
  3. OBINUTUZUMAB [Suspect]
     Active Substance: OBINUTUZUMAB
     Dosage: 1000 MG
     Route: 042
     Dates: start: 20220111
  4. TRIAMCINOLONE ACETONIDE [Suspect]
     Active Substance: TRIAMCINOLONE ACETONIDE
     Dosage: 50MG
  5. ELIQUIS [Concomitant]
     Active Substance: APIXABAN
     Indication: Pulmonary embolism
     Dosage: 5 MG, QD
     Route: 048
     Dates: start: 20210419
  6. ATORVASTATIN [Concomitant]
     Active Substance: ATORVASTATIN
     Indication: Coronary artery disease
     Dosage: 80 MG, QD
     Route: 048
     Dates: start: 200606
  7. ATORVASTATIN [Concomitant]
     Active Substance: ATORVASTATIN
     Indication: Hyperlipidaemia
  8. OMEPRAZOLE [Concomitant]
     Active Substance: OMEPRAZOLE
     Indication: Gastrooesophageal reflux disease
     Dosage: 20 MG, QD
     Route: 048
     Dates: start: 20210510
  9. TAMSULOSIN [Concomitant]
     Active Substance: TAMSULOSIN
     Indication: Urinary retention
     Dosage: 0.4 MG, QD
     Route: 048
     Dates: start: 2016
  10. HYDROXYZINE [Concomitant]
     Active Substance: HYDROXYZINE HYDROCHLORIDE
     Indication: Insomnia
     Dosage: 10 MG, PRN
     Route: 048
     Dates: start: 20211221
  11. SOLU-CORTEF [Concomitant]
     Active Substance: HYDROCORTISONE SODIUM SUCCINATE
     Dosage: 50 MG, BID
     Route: 042
     Dates: start: 20220310
  12. PREDNISONE [Concomitant]
     Active Substance: PREDNISONE
     Dosage: 20 MG, QD
     Route: 048
     Dates: start: 20220315
  13. PREDNISONE [Concomitant]
     Active Substance: PREDNISONE
     Dosage: 10 UNK
     Route: 048
     Dates: start: 20220318
  14. CEFDINIR [Concomitant]
     Active Substance: CEFDINIR
     Dosage: TWICE DAILY FOR 1 DAY
     Route: 048
  15. CEFDINIR [Concomitant]
     Active Substance: CEFDINIR
  16. NAPTUMOMAB ESTAFENATOX [Concomitant]
     Active Substance: NAPTUMOMAB ESTAFENATOX
     Dosage: 1-4 EVERY 21 DAYS
     Dates: start: 20220131, end: 20220303
  17. NAPTUMOMAB ESTAFENATOX [Concomitant]
     Active Substance: NAPTUMOMAB ESTAFENATOX
     Dosage: UNK
     Dates: start: 20220328
  18. METHIMAZOLE [Concomitant]
     Active Substance: METHIMAZOLE
  19. OXYCODONE [Concomitant]
     Active Substance: OXYCODONE
  20. MORPHINE [Concomitant]
     Active Substance: MORPHINE
  21. MIDODRINE [Concomitant]
     Active Substance: MIDODRINE
     Indication: Hypotension
     Dosage: 10 MG, TID
     Route: 048
     Dates: start: 20220426
  22. PROSCAR [Concomitant]
     Active Substance: FINASTERIDE

REACTIONS (13)
  - Neutropenia [Recovered/Resolved]
  - Pneumonia aspiration [Recovered/Resolved]
  - Illness [Recovered/Resolved]
  - COVID-19 pneumonia [Unknown]
  - Cough [Unknown]
  - Hypotension [Recovered/Resolved]
  - Fatigue [Recovered/Resolved]
  - Lethargy [Recovered/Resolved]
  - Dyspnoea [Recovering/Resolving]
  - Crepitations [Unknown]
  - Pyrexia [Unknown]
  - Dysphagia [Unknown]
  - Heart rate increased [Unknown]

NARRATIVE: CASE EVENT DATE: 20220101
